FAERS Safety Report 7431145-X (Version None)
Quarter: 2011Q2

REPORT INFORMATION
  Report Type: 
  Country: None (occurrence: None)
  Receive Date: 20110421
  Receipt Date: 20101130
  Transmission Date: 20111010
  Serious: Yes (Death, Life-Threatening, Hospitalization)
  Sender: FDA-Public Use
  Company Number: JP-BAYER-201015832BYL

PATIENT
  Age: 80 Year
  Sex: Female

DRUGS (15)
  1. CALFINA AMEL [Concomitant]
     Dosage: 0.5 ?G, QD
     Route: 048
  2. MUCODYNE [Concomitant]
     Dosage: 1500 MG, QD
     Route: 048
  3. TRYPTANOL [Concomitant]
     Dosage: 20 MG, QD
     Route: 048
  4. TENORMIN [Concomitant]
     Dosage: 25 MG, QD
     Route: 048
  5. ANTIBACTERIALS FOR SYSTEMIC USE [Concomitant]
     Dosage: 200 MG, QD
     Route: 048
  6. ARICEPT [Concomitant]
     Dosage: 5 MG, QD
     Route: 048
  7. DASEN [Concomitant]
     Dosage: 30 MG, QD
     Route: 048
  8. WARFARIN POTASSIUM [Suspect]
     Indication: ATRIAL FIBRILLATION
     Dosage: DAILY DOSE 2 MG
     Route: 048
  9. CEROCRAL [Concomitant]
     Dosage: 30 MG, QD
     Route: 048
  10. MICARDIS [Concomitant]
     Dosage: 40 MG, QD
     Route: 048
  11. ASPIRIN [Suspect]
     Indication: ATRIAL FIBRILLATION
     Route: 048
  12. BIO THREE [BACTERIA NOS] [Concomitant]
     Dosage: 3 DF, QD
     Route: 048
  13. ANTOBRON [Concomitant]
     Dosage: 45 MG, QD
     Route: 048
  14. NORVASC [Concomitant]
     Dosage: 2.5 MG, QD
     Route: 048
  15. DIAZEPAM [Concomitant]
     Dosage: 6 MG, QD
     Route: 048

REACTIONS (4)
  - INTUSSUSCEPTION [None]
  - COLONIC HAEMATOMA [None]
  - CARDIO-RESPIRATORY ARREST [None]
  - MYOCARDIAL INFARCTION [None]
